FAERS Safety Report 11403944 (Version 1)
Quarter: 2015Q3

REPORT INFORMATION
  Report Type: Spontaneous
  Country: US (occurrence: None)
  Receive Date: 20150820
  Receipt Date: 20150820
  Transmission Date: 20151125
  Serious: Yes (Hospitalization)
  Sender: FDA-Public Use
  Company Number: None

PATIENT
  Age: 31 Year
  Sex: Female
  Weight: 52.16 kg

DRUGS (8)
  1. PROBIOTICS [Concomitant]
     Active Substance: PROBIOTICS NOS
  2. TYLENOL [Concomitant]
     Active Substance: ACETAMINOPHEN
  3. KLONIPIN [Concomitant]
     Active Substance: CLONAZEPAM
  4. ALLEGRA [Concomitant]
     Active Substance: FEXOFENADINE HYDROCHLORIDE
  5. VYVANSE [Concomitant]
     Active Substance: LISDEXAMFETAMINE DIMESYLATE
  6. MULTIVITAMIN [Concomitant]
     Active Substance: VITAMINS
  7. ONEXTON [Suspect]
     Active Substance: BENZOYL PEROXIDE\CLINDAMYCIN PHOSPHATE
     Indication: ACNE
     Dosage: 1, APPLIED TO A SURFACE USUALLY THE SKIN
     Dates: start: 20150801, end: 20150819
  8. PROZAC [Concomitant]
     Active Substance: FLUOXETINE HYDROCHLORIDE

REACTIONS (8)
  - Abdominal pain upper [None]
  - Pruritus [None]
  - Colitis [None]
  - Abdominal distension [None]
  - Acne [None]
  - Dehydration [None]
  - Nausea [None]
  - Dizziness [None]

NARRATIVE: CASE EVENT DATE: 20150807
